FAERS Safety Report 25929317 (Version 1)
Quarter: 2025Q4

REPORT INFORMATION
  Report Type: Spontaneous
  Country: EU (occurrence: EU)
  Receive Date: 20251016
  Receipt Date: 20251016
  Transmission Date: 20260117
  Serious: Yes (Hospitalization, Other)
  Sender: CHEPLAPHARM
  Company Number: None

PATIENT
  Age: 85 Year
  Sex: Female
  Weight: 80 kg

DRUGS (20)
  1. QUETIAPINE [Suspect]
     Active Substance: QUETIAPINE
     Indication: Insomnia
     Dosage: 25MG 0-0-1?DAILY DOSE: 50 MILLIGRAM
     Route: 048
     Dates: start: 20190614
  2. ABILIFY [Suspect]
     Active Substance: ARIPIPRAZOLE
     Indication: Bipolar I disorder
     Route: 048
     Dates: start: 20130307, end: 20161123
  3. ABILIFY [Suspect]
     Active Substance: ARIPIPRAZOLE
     Indication: Bipolar I disorder
     Dosage: 5MG 2-0-0, 28 TABLETS?DAILY DOSE: 10 MILLIGRAM
     Route: 048
     Dates: start: 20250227, end: 20250826
  4. LITHIUM CARBONATE [Suspect]
     Active Substance: LITHIUM CARBONATE
     Indication: Bipolar I disorder
     Dosage: 400MG 0.5-0-1, 100 TABLETS?DAILY DOSE: 600 MILLIGRAM
     Route: 048
     Dates: start: 20180123
  5. LITHIUM CARBONATE [Suspect]
     Active Substance: LITHIUM CARBONATE
     Indication: Bipolar I disorder
     Dosage: REDUCED TO 0-0-1 ?DAILY DOSE: 400 MILLIGRAM
     Route: 048
     Dates: start: 20250826
  6. TRAZODONE HYDROCHLORIDE [Suspect]
     Active Substance: TRAZODONE HYDROCHLORIDE
     Indication: Bipolar I disorder
     Dates: start: 20170720, end: 20180123
  7. TRAZODONE HYDROCHLORIDE [Suspect]
     Active Substance: TRAZODONE HYDROCHLORIDE
     Indication: Bipolar I disorder
     Dosage: 100MG 0-0-1, 1000 TABLETS?DAILY DOSE: 100 MILLIGRAM
     Route: 048
     Dates: start: 20250617, end: 20250826
  8. ACETAMINOPHEN [Concomitant]
     Active Substance: ACETAMINOPHEN
  9. Nolotil [Concomitant]
  10. CYANOCOBALAMIN [Concomitant]
     Active Substance: CYANOCOBALAMIN
  11. CALCIFEDIOL [Concomitant]
     Active Substance: CALCIFEDIOL
  12. SIMVASTATIN [Concomitant]
     Active Substance: SIMVASTATIN
     Dosage: 0-0-1?DAILY DOSE: 1 DOSAGE FORM
  13. CARBIDOPA\LEVODOPA [Concomitant]
     Active Substance: CARBIDOPA\LEVODOPA
     Dosage: 1-1-1?DAILY DOSE: 3 DOSAGE FORM
  14. FUROSEMIDE [Concomitant]
     Active Substance: FUROSEMIDE
     Dosage: 2-1-0?DAILY DOSE: 3 DOSAGE FORM
  15. ELIQUIS [Concomitant]
     Active Substance: APIXABAN
     Dosage: 1-0-1?DAILY DOSE: 10 MILLIGRAM
  16. DAPAGLIFLOZIN PROPANEDIOL\METFORMIN HYDROCHLORIDE [Concomitant]
     Active Substance: DAPAGLIFLOZIN PROPANEDIOL\METFORMIN HYDROCHLORIDE
     Dosage: 1-0-0?DAILY DOSE: 1 DOSAGE FORM
  17. ALDACTONE [Concomitant]
     Active Substance: SPIRONOLACTONE
     Dosage: 25 0-1-0?DAILY DOSE: 1 DOSAGE FORM
  18. OLODATEROL HYDROCHLORIDE\TIOTROPIUM BROMIDE MONOHYDRATE [Concomitant]
     Active Substance: OLODATEROL HYDROCHLORIDE\TIOTROPIUM BROMIDE MONOHYDRATE
     Dosage: 2-0-0?DAILY DOSE: 2 DOSAGE FORM
  19. LINAGLIPTIN [Concomitant]
     Active Substance: LINAGLIPTIN
     Dosage: 0-1-0?DAILY DOSE: 1 DOSAGE FORM
  20. RETACRIT [Concomitant]
     Active Substance: EPOETIN ALFA-EPBX
     Dosage: 40000 TWICE WEEKLY

REACTIONS (8)
  - Encephalopathy [Recovered/Resolved]
  - Depressed level of consciousness [Recovered/Resolved]
  - Asterixis [Recovered/Resolved]
  - Facial myokymia [Recovered/Resolved]
  - Tachypnoea [Unknown]
  - Subclavian vein thrombosis [Unknown]
  - Escherichia urinary tract infection [Unknown]
  - Off label use [Not Recovered/Not Resolved]

NARRATIVE: CASE EVENT DATE: 20190614
